FAERS Safety Report 18479155 (Version 5)
Quarter: 2021Q1

REPORT INFORMATION
  Report Type: Report from Study
  Country: US (occurrence: US)
  Receive Date: 20201109
  Receipt Date: 20210319
  Transmission Date: 20210419
  Serious: Yes (Other)
  Sender: FDA-Public Use
  Company Number: NVSC2020US290910

PATIENT
  Sex: Female

DRUGS (2)
  1. COSENTYX [Suspect]
     Active Substance: SECUKINUMAB
     Indication: PSORIATIC ARTHROPATHY
     Dosage: UNK
     Route: 058
  2. COSENTYX [Suspect]
     Active Substance: SECUKINUMAB
     Dosage: UNK
     Route: 058

REACTIONS (8)
  - Pain [Unknown]
  - Fungal infection [Unknown]
  - Product storage error [Unknown]
  - Blister [Unknown]
  - Product dose omission issue [Unknown]
  - Psoriatic arthropathy [Unknown]
  - Peripheral swelling [Unknown]
  - Eczema [Unknown]
